FAERS Safety Report 10203718 (Version 1)
Quarter: 2014Q2

REPORT INFORMATION
  Report Type: Spontaneous
  Country: GB (occurrence: None)
  Receive Date: 20140523
  Receipt Date: 20140523
  Transmission Date: 20141212
  Serious: Yes (Disabling, Other)
  Sender: FDA-Public Use
  Company Number: AUR-APL-2014-05993

PATIENT
  Age: 84 Year
  Sex: Male

DRUGS (1)
  1. CIPROFLOXACIN (CIPROFLOXACIN) [Suspect]
     Indication: PROSTATITIS
     Dosage: 1000 MG (500 MG, 2 IN 1 D) ORAL
     Route: 048
     Dates: start: 20140407, end: 20140427

REACTIONS (8)
  - Muscular weakness [None]
  - Abasia [None]
  - Lethargy [None]
  - Back pain [None]
  - Paraesthesia [None]
  - Asthenia [None]
  - Myalgia [None]
  - Sleep disorder [None]
